FAERS Safety Report 7570989-0 (Version None)
Quarter: 2011Q2

REPORT INFORMATION
  Report Type: 
  Country: None (occurrence: None)
  Receive Date: 20110622
  Receipt Date: 20110622
  Transmission Date: 20111010
  Serious: Yes (Life-Threatening, Other)
  Sender: FDA-Public Use
  Company Number: None

PATIENT
  Age: 75 Year
  Sex: Female
  Weight: 58.514 kg

DRUGS (2)
  1. AMLODIPINE [Suspect]
     Indication: HYPERTENSION
     Dosage: AMLODIPINE 10MG
  2. BENICAR [Suspect]
     Indication: HYPERTENSION
     Dosage: BENICAR 40/25 MG TABS  1 A DAY

REACTIONS (8)
  - DRY MOUTH [None]
  - PALPITATIONS [None]
  - DRUG INEFFECTIVE [None]
  - DIZZINESS [None]
  - VISION BLURRED [None]
  - ASTHENIA [None]
  - LACRIMATION INCREASED [None]
  - WRONG TECHNIQUE IN DRUG USAGE PROCESS [None]
